FAERS Safety Report 14519538 (Version 2)
Quarter: 2018Q1

REPORT INFORMATION
  Report Type: Spontaneous
  Country: US (occurrence: US)
  Receive Date: 20180212
  Receipt Date: 20180330
  Transmission Date: 20180509
  Serious: Yes (Death, Hospitalization, Other)
  Sender: FDA-Public Use
  Company Number: US-009507513-1802USA005206

PATIENT
  Age: 99 Year
  Sex: Female
  Weight: 65.76 kg

DRUGS (4)
  1. METFORMIN [Concomitant]
     Active Substance: METFORMIN HYDROCHLORIDE
     Dosage: 0.5 G, QD
     Route: 048
  2. JANUVIA [Suspect]
     Active Substance: SITAGLIPTIN PHOSPHATE
     Indication: TYPE 2 DIABETES MELLITUS
     Dosage: 100 MG, QD
     Route: 048
     Dates: start: 20160810, end: 20160911
  3. LASIX [Concomitant]
     Active Substance: FUROSEMIDE
     Dosage: 20 MG, QD
     Route: 048
  4. NORVASC [Concomitant]
     Active Substance: AMLODIPINE BESYLATE
     Dosage: 5 MG, QD
     Route: 048

REACTIONS (8)
  - Vomiting [Unknown]
  - Abdominal pain [Unknown]
  - Pancreatic mass [Unknown]
  - Hospice care [Unknown]
  - Jaundice [Unknown]
  - Death [Fatal]
  - Pancreatic carcinoma [Unknown]
  - Nausea [Unknown]

NARRATIVE: CASE EVENT DATE: 2016
